FAERS Safety Report 11254538 (Version 1)
Quarter: 2015Q3

REPORT INFORMATION
  Report Type: Spontaneous
  Country: DK (occurrence: DK)
  Receive Date: 20150709
  Receipt Date: 20150709
  Transmission Date: 20151125
  Serious: Yes (Hospitalization)
  Sender: FDA-Public Use
  Company Number: PHHY2015DK078507

PATIENT
  Age: 82 Year
  Sex: Female

DRUGS (8)
  1. FURIX [Concomitant]
     Active Substance: FUROSEMIDE
     Indication: DIURETIC THERAPY
     Route: 065
  2. IMADRAX [Suspect]
     Active Substance: AMOXICILLIN
     Indication: DIVERTICULITIS
     Dosage: STRENGTH: 500 MG.
     Route: 048
     Dates: start: 20150616, end: 20150619
  3. METRONIDAZOL ACTAVIS [Suspect]
     Active Substance: METRONIDAZOLE
     Indication: DIVERTICULITIS
     Dosage: STRENGTH: 500 MG.
     Route: 048
     Dates: start: 20150616, end: 20150619
  4. LOSARTAN POTASSIUM. [Concomitant]
     Active Substance: LOSARTAN POTASSIUM
     Indication: HYPERTENSION
     Route: 065
  5. PANTOLOC ^BYK GULDEN^ [Concomitant]
     Indication: GASTRIC PH DECREASED
     Route: 065
  6. CLOPIDOGREL [Concomitant]
     Active Substance: CLOPIDOGREL BISULFATE
     Indication: PROPHYLAXIS
     Route: 065
  7. KALEORID [Concomitant]
     Active Substance: POTASSIUM CHLORIDE
     Indication: BLOOD POTASSIUM
     Route: 065
  8. SIMVASTATIN. [Concomitant]
     Active Substance: SIMVASTATIN
     Indication: HYPERCHOLESTEROLAEMIA
     Route: 065

REACTIONS (2)
  - Dyspnoea [Recovered/Resolved]
  - Rash [Unknown]

NARRATIVE: CASE EVENT DATE: 20150618
